FAERS Safety Report 7371378-4 (Version None)
Quarter: 2011Q1

REPORT INFORMATION
  Report Type: 
  Country: None (occurrence: None)
  Receive Date: 20110322
  Receipt Date: 20110322
  Transmission Date: 20110831
  Serious: No
  Sender: FDA-Public Use
  Company Number: None

PATIENT
  Age: 76 Year
  Sex: Male
  Weight: 79.3795 kg

DRUGS (1)
  1. NEXIUM [Suspect]
     Indication: OESOPHAGITIS HAEMORRHAGIC
     Dosage: 40 2X PO
     Route: 048
     Dates: start: 20000125, end: 20110127

REACTIONS (1)
  - BLOOD MAGNESIUM DECREASED [None]
